FAERS Safety Report 5755372-2 (Version None)
Quarter: 2008Q2

REPORT INFORMATION
  Report Type: 
  Country: None (occurrence: None)
  Receive Date: 20080529
  Receipt Date: 20080529
  Transmission Date: 20081010
  Serious: Yes (Other)
  Sender: FDA-Public Use
  Company Number: None

PATIENT
  Sex: Female
  Weight: 63.5036 kg

DRUGS (1)
  1. FOSAMAX PLUS D [Suspect]
     Indication: PROPHYLAXIS
     Dosage: 1 TABLET  1 TIME PER WEEK
     Dates: start: 20071128, end: 20080319

REACTIONS (2)
  - ACTIVITIES OF DAILY LIVING IMPAIRED [None]
  - ARTHRALGIA [None]
